FAERS Safety Report 9255709 (Version 2)
Quarter: 2013Q2

REPORT INFORMATION
  Report Type: Spontaneous
  Country: FR (occurrence: FR)
  Receive Date: 20130425
  Receipt Date: 20130517
  Transmission Date: 20140414
  Serious: Yes (Hospitalization, Disabling, Other)
  Sender: FDA-Public Use
  Company Number: FR-009507513-1304FRA012406

PATIENT
  Age: 49 Year
  Sex: Male
  Weight: 178 kg

DRUGS (13)
  1. VICTRELIS [Suspect]
     Indication: HEPATITIS C
     Dosage: 4 DF, TID
     Route: 048
     Dates: end: 20130408
  2. PEGASYS [Suspect]
     Indication: HEPATITIS C
     Dosage: 180 MICROGRAM, QW
     Route: 058
     Dates: end: 20130408
  3. COPEGUS [Suspect]
     Indication: HEPATITIS C
     Dosage: 3 DF, QD
     Route: 048
     Dates: end: 20130408
  4. EPREX [Suspect]
     Indication: ANAEMIA
     Dosage: 10000 UNK, UNK
     Route: 058
  5. AMLOR [Concomitant]
     Indication: HYPERTENSION
     Dosage: 5 MG, UNK
     Route: 048
  6. CACIT [Concomitant]
     Indication: CALCIUM DEFICIENCY
     Dosage: 1000 MG, UNK
     Route: 048
  7. SELECTOL [Concomitant]
     Indication: HYPERTENSION
     Dosage: 200 MG, UNK
     Route: 048
  8. CORTANCYL [Concomitant]
     Indication: RENAL FAILURE
     Dosage: 5 MG, UNK
     Route: 048
  9. LASILIX [Concomitant]
     Indication: RENAL FAILURE
     Dosage: 250 MG, BID
  10. MICARDIS [Concomitant]
     Indication: HYPERTENSION
     Dosage: UNK
  11. RENAGEL [Concomitant]
     Indication: HYPERTENSION
     Dosage: 800 MG, UNK
  12. TAHOR [Concomitant]
     Indication: HYPERCHOLESTEROLAEMIA
     Dosage: 20 MG, UNK
  13. FERINJECT [Concomitant]
     Indication: IRON DEFICIENCY ANAEMIA
     Dosage: UNK

REACTIONS (2)
  - Sudden hearing loss [Recovering/Resolving]
  - Ear pain [Recovering/Resolving]
